FAERS Safety Report 9238616 (Version 5)
Quarter: 2014Q1

REPORT INFORMATION
  Report Type: Spontaneous
  Country: US (occurrence: US)
  Receive Date: 20130418
  Receipt Date: 20140128
  Transmission Date: 20141002
  Serious: Yes (Death, Other)
  Sender: FDA-Public Use
  Company Number: US-JNJFOC-20130406295

PATIENT
  Sex: 0

DRUGS (7)
  1. REMICADE [Suspect]
     Indication: CROHN^S DISEASE
     Route: 042
  2. AZATHIOPRINE [Concomitant]
     Route: 065
  3. 6-MERCAPTOPURINE [Concomitant]
     Route: 065
  4. METHOTREXATE [Concomitant]
     Route: 065
  5. PREDNISONE [Concomitant]
     Route: 065
  6. BUDESONIDE [Concomitant]
     Route: 065
  7. TACROLIMUS [Concomitant]
     Route: 065

REACTIONS (39)
  - Goitre [Unknown]
  - Herpes virus infection [Unknown]
  - Cervical polyp [Unknown]
  - Thyroid adenoma [Unknown]
  - Crohn^s disease [Fatal]
  - Basal cell carcinoma [Unknown]
  - Cervix carcinoma [Unknown]
  - Invasive ductal breast carcinoma [Unknown]
  - Pneumonia bacterial [Unknown]
  - Viral infection [Unknown]
  - Lupus-like syndrome [Unknown]
  - Infection [Fatal]
  - Type IV hypersensitivity reaction [Unknown]
  - Death [Fatal]
  - Septic shock [Unknown]
  - Sepsis [Unknown]
  - Histoplasmosis [Unknown]
  - Malignant melanoma [Unknown]
  - Skin cancer [Unknown]
  - Lymphoma [Unknown]
  - Escherichia infection [Unknown]
  - Clostridium difficile infection [Unknown]
  - Klebsiella infection [Unknown]
  - Staphylococcal infection [Unknown]
  - Streptococcal infection [Unknown]
  - Hepatitis viral [Unknown]
  - Respiratory tract infection viral [Unknown]
  - Candida infection [Unknown]
  - Fungal infection [Unknown]
  - Infusion related reaction [Unknown]
  - Squamous cell carcinoma of skin [Unknown]
  - Leukaemia [Unknown]
  - Large intestine polyp [Unknown]
  - Cervical dysplasia [Unknown]
  - Dysplastic naevus [Unknown]
  - Melanocytic naevus [Unknown]
  - Drug ineffective [Unknown]
  - Pelvic abscess [Unknown]
  - Bacterial infection [Unknown]
